FAERS Safety Report 7251868-5 (Version None)
Quarter: 2011Q1

REPORT INFORMATION
  Report Type: 
  Country: None (occurrence: None)
  Receive Date: 20110128
  Receipt Date: 20100108
  Transmission Date: 20110831
  Serious: No
  Sender: FDA-Public Use
  Company Number: US-ABBOTT-09P-163-0611055-00

PATIENT
  Sex: Female

DRUGS (1)
  1. HUMIRA [Suspect]
     Indication: RHEUMATOID ARTHRITIS

REACTIONS (5)
  - INFLAMMATION [None]
  - JOINT CREPITATION [None]
  - PROCEDURAL COMPLICATION [None]
  - DRUG DOSE OMISSION [None]
  - MUSCULOSKELETAL STIFFNESS [None]
